FAERS Safety Report 5933165-0 (Version None)
Quarter: 2008Q4

REPORT INFORMATION
  Report Type: 
  Country: None (occurrence: None)
  Receive Date: 20081028
  Receipt Date: 20081017
  Transmission Date: 20090506
  Serious: Yes (Other)
  Sender: FDA-Public Use
  Company Number: FR-WYE-H06527108

PATIENT
  Age: 64 Year
  Sex: Male

DRUGS (1)
  1. CORDARONE [Suspect]
     Indication: ATRIAL FIBRILLATION
     Dosage: 200 MG TABLET (DOSE AND REGIMEN UNSPECIFIED)
     Route: 048
     Dates: start: 20030101, end: 20070501

REACTIONS (3)
  - HYPERTHYROIDISM [None]
  - PHOTOSENSITIVITY REACTION [None]
  - WEIGHT INCREASED [None]
